FAERS Safety Report 19277251 (Version 1)
Quarter: 2021Q2

REPORT INFORMATION
  Report Type: Spontaneous
  Country: CN (occurrence: CN)
  Receive Date: 20210519
  Receipt Date: 20210519
  Transmission Date: 20210717
  Serious: Yes (Other)
  Sender: FDA-Public Use
  Company Number: CN-ROCHE-2831009

PATIENT
  Sex: Male
  Weight: 69 kg

DRUGS (4)
  1. AVASTIN [Suspect]
     Active Substance: BEVACIZUMAB
     Indication: LUNG ADENOCARCINOMA
     Route: 065
     Dates: start: 20210108, end: 20210108
  2. LOBAPLATIN [Suspect]
     Active Substance: LOBAPLATIN
     Indication: LUNG ADENOCARCINOMA
     Route: 065
     Dates: start: 20210110, end: 20210110
  3. DOCETAXEL. [Suspect]
     Active Substance: DOCETAXEL
     Indication: LUNG ADENOCARCINOMA
     Route: 065
     Dates: start: 20210109, end: 20210109
  4. KANG LAI TE ZHU SHE YE [Concomitant]
     Active Substance: COIX LACRYMA-JOBI VAR. MA-YUEN SEED
     Indication: LUNG ADENOCARCINOMA
     Route: 065
     Dates: start: 20210107, end: 20210116

REACTIONS (2)
  - Myelosuppression [Recovered/Resolved]
  - Gastrointestinal disorder [Recovering/Resolving]

NARRATIVE: CASE EVENT DATE: 20210113
